FAERS Safety Report 4530166-4 (Version None)
Quarter: 2004Q4

REPORT INFORMATION
  Report Type: 
  Country: None (occurrence: None)
  Receive Date: 20041217
  Receipt Date: 20041206
  Transmission Date: 20050328
  Serious: Yes (Hospitalization)
  Sender: FDA-Public Use
  Company Number: SE-AMGEN-UK101998

PATIENT
  Age: 66 Year
  Sex: Female

DRUGS (3)
  1. KINERET [Suspect]
     Indication: RHEUMATOID ARTHRITIS
     Route: 058
  2. WARFARIN SODIUM [Concomitant]
  3. PREDNISOLONE [Concomitant]

REACTIONS (6)
  - ATRIAL FIBRILLATION [None]
  - BACTERIAL SEPSIS [None]
  - CEREBROVASCULAR ACCIDENT [None]
  - ECZEMA [None]
  - ERYSIPELAS [None]
  - FUNGAL SKIN INFECTION [None]
